FAERS Safety Report 8304392 (Version 4)
Quarter: 2012Q4

REPORT INFORMATION
  Report Type: Report from Study
  Country: BR (occurrence: BR)
  Receive Date: 20111221
  Receipt Date: 20121213
  Transmission Date: 20130627
  Serious: Yes (Hospitalization)
  Sender: FDA-Public Use
  Company Number: BR-JNJFOC-20111206002

PATIENT
  Age: 78 Year
  Sex: Male
  Weight: 76.5 kg

DRUGS (5)
  1. ABIRATERONE ACETATE [Suspect]
     Route: 048
  2. ABIRATERONE ACETATE [Suspect]
     Indication: PROSTATE CANCER METASTATIC
     Route: 048
     Dates: start: 20111006, end: 20111227
  3. PREDNISONE [Suspect]
     Indication: PROSTATE CANCER METASTATIC
     Route: 048
     Dates: start: 20111006
  4. ZOLADEX [Concomitant]
     Indication: HORMONE THERAPY
     Route: 065
     Dates: start: 201104
  5. ZOLADEX [Concomitant]
     Indication: HORMONE THERAPY
     Route: 065
     Dates: start: 200412, end: 200512

REACTIONS (3)
  - Bundle branch block left [Recovered/Resolved]
  - Decreased appetite [Recovered/Resolved]
  - Bone pain [Recovered/Resolved with Sequelae]
